FAERS Safety Report 10045494 (Version 1)
Quarter: 2014Q1

REPORT INFORMATION
  Report Type: Spontaneous
  Country: US (occurrence: US)
  Receive Date: 20140328
  Receipt Date: 20140328
  Transmission Date: 20141002
  Serious: Yes (Hospitalization, Other)
  Sender: FDA-Public Use
  Company Number: US-ELI_LILLY_AND_COMPANY-US201403007518

PATIENT
  Age: 87 Year
  Sex: Female

DRUGS (3)
  1. INSULIN HUMAN [Suspect]
     Indication: TYPE 2 DIABETES MELLITUS
     Dosage: 15 U, BID
     Route: 065
  2. LEVEMIR [Concomitant]
  3. COREG [Concomitant]

REACTIONS (2)
  - Fall [Unknown]
  - Fall [Unknown]
